FAERS Safety Report 11737322 (Version 1)
Quarter: 2015Q4

REPORT INFORMATION
  Report Type: Spontaneous
  Country: US (occurrence: US)
  Receive Date: 20151110
  Receipt Date: 20151110
  Transmission Date: 20160304
  Serious: No
  Sender: FDA-Public Use
  Company Number: US-ELI_LILLY_AND_COMPANY-US201204002716

PATIENT
  Sex: Female

DRUGS (3)
  1. FORTEO [Suspect]
     Active Substance: TERIPARATIDE
     Dosage: UNK, UNKNOWN
     Route: 065
  2. FORTEO [Suspect]
     Active Substance: TERIPARATIDE
     Indication: OSTEOPOROSIS
     Route: 065
  3. FORTEO [Suspect]
     Active Substance: TERIPARATIDE

REACTIONS (9)
  - Neuropathy peripheral [Not Recovered/Not Resolved]
  - Headache [Not Recovered/Not Resolved]
  - Flatulence [Unknown]
  - Pain in extremity [Unknown]
  - Arthralgia [Unknown]
  - Diarrhoea [Unknown]
  - Feeling abnormal [Unknown]
  - Discomfort [Unknown]
  - Injection site bruising [Unknown]
